FAERS Safety Report 17243041 (Version 1)
Quarter: 2020Q1

REPORT INFORMATION
  Report Type: Spontaneous
  Country: FR (occurrence: FR)
  Receive Date: 20200107
  Receipt Date: 20200107
  Transmission Date: 20200409
  Serious: Yes (Hospitalization)
  Sender: FDA-Public Use
  Company Number: FR-ALLERGAN-2000107US

PATIENT
  Sex: Female

DRUGS (3)
  1. FLUDEX [Concomitant]
     Indication: PRODUCT USED FOR UNKNOWN INDICATION
  2. COVERSYL [Concomitant]
     Active Substance: PERINDOPRIL
     Indication: PRODUCT USED FOR UNKNOWN INDICATION
  3. NITROGLYCERIN - BP [Suspect]
     Active Substance: NITROGLYCERIN
     Indication: ANAL FISSURE
     Dosage: 4 MG, QD
     Route: 054
     Dates: start: 20191128, end: 20191128

REACTIONS (5)
  - Angina unstable [Recovered/Resolved]
  - Vertigo [Recovered/Resolved]
  - Tachycardia [Recovered/Resolved]
  - Feeling abnormal [Recovered/Resolved]
  - Headache [Recovered/Resolved]

NARRATIVE: CASE EVENT DATE: 20191128
